FAERS Safety Report 7543947-X (Version None)
Quarter: 2011Q2

REPORT INFORMATION
  Report Type: 
  Country: None (occurrence: None)
  Receive Date: 20110613
  Receipt Date: 20110601
  Transmission Date: 20111010
  Serious: Yes (Other)
  Sender: FDA-Public Use
  Company Number: PHHY2011JP48885

PATIENT
  Sex: Male

DRUGS (31)
  1. NEORAL [Suspect]
     Dosage: 450 MG
     Route: 048
     Dates: start: 20100805
  2. MEDROL [Concomitant]
     Indication: RENAL TRANSPLANT
     Dosage: 12 MG
     Route: 048
     Dates: start: 20100721
  3. METHYLPREDNISOLONE SODIUM SUCCINATE [Concomitant]
     Dosage: 250 MG
     Route: 042
  4. NEORAL [Suspect]
     Dosage: 400 MG
     Route: 048
     Dates: start: 20100810
  5. ITRACONAZOLE [Concomitant]
     Dosage: 200 MG
     Route: 048
     Dates: start: 20100716
  6. NEORAL [Suspect]
     Indication: RENAL TRANSPLANT
     Dosage: 500 MG
     Route: 048
     Dates: start: 20100716, end: 20100727
  7. CELLCEPT [Suspect]
     Indication: RENAL TRANSPLANT
     Dosage: 500 MG
     Route: 048
     Dates: start: 20100701
  8. VALGANCICLOVIR [Suspect]
     Indication: RENAL TRANSPLANT
     Dosage: 450 MG
     Route: 048
     Dates: start: 20100827, end: 20100906
  9. MEDROL [Concomitant]
     Dosage: 16 MG
  10. AMLODIPINE [Concomitant]
     Dosage: 5 MG
     Route: 048
     Dates: start: 20100812
  11. CELLCEPT [Suspect]
     Dosage: 1500 MG
     Route: 048
     Dates: start: 20100812
  12. MEDROL [Concomitant]
     Dosage: 20 MG
  13. MEDROL [Concomitant]
     Dosage: 8 MG
     Route: 048
  14. RITUXAN [Concomitant]
     Dosage: 200 MG
     Route: 042
     Dates: start: 20100720
  15. METHYLPREDNISOLONE SODIUM SUCCINATE [Concomitant]
     Indication: RENAL TRANSPLANT
     Dosage: 500 MG
     Route: 042
     Dates: start: 20100728
  16. METHYLPREDNISOLONE SODIUM SUCCINATE [Concomitant]
     Dosage: 125 MG
     Route: 042
  17. METHYLPREDNISOLONE SODIUM SUCCINATE [Concomitant]
     Dosage: 80 MG
     Route: 042
  18. SIMULECT [Concomitant]
     Indication: RENAL TRANSPLANT
     Dosage: 20 MG
     Route: 042
     Dates: start: 20100728, end: 20100801
  19. METHYLPREDNISOLONE SODIUM SUCCINATE [Concomitant]
     Dosage: 60 MG
     Route: 042
  20. METHYLPREDNISOLONE SODIUM SUCCINATE [Concomitant]
     Dosage: 40 MG
     Route: 042
  21. PRAVASTATIN SODIUM [Concomitant]
     Dosage: 10 MG
     Route: 048
     Dates: start: 20100812
  22. LANSOPRAZOLE [Concomitant]
     Dosage: 15 MG
     Route: 048
     Dates: start: 20100716
  23. SULFAMETHOXAZOLE [Concomitant]
     Dosage: 480 MG
     Route: 048
     Dates: start: 20100813
  24. SANDIMMUNE [Suspect]
     Indication: RENAL TRANSPLANT
     Dosage: 100 MG
     Route: 042
     Dates: start: 20100728, end: 20100801
  25. CELLCEPT [Suspect]
     Dosage: 2000 MG
     Route: 048
     Dates: start: 20100728
  26. MEDROL [Concomitant]
     Dosage: 4 MG
     Route: 048
  27. NEORAL [Suspect]
     Dosage: 500 MG
     Route: 048
     Dates: start: 20100801
  28. MEDROL [Concomitant]
     Dosage: 12 MG
     Route: 048
  29. MEDROL [Concomitant]
     Dosage: 6 MG
     Route: 048
  30. URINORM [Concomitant]
     Dosage: 50 MG
     Route: 048
     Dates: start: 20100804
  31. SIMVASTATIN [Concomitant]
     Dosage: 5 MG
     Route: 048
     Dates: start: 20100208

REACTIONS (1)
  - NEUTROPHIL COUNT DECREASED [None]
